FAERS Safety Report 18350869 (Version 1)
Quarter: 2020Q4

REPORT INFORMATION
  Report Type: Report from Study
  Country: JP (occurrence: JP)
  Receive Date: 20201006
  Receipt Date: 20201006
  Transmission Date: 20210114
  Serious: Yes (Hospitalization)
  Sender: FDA-Public Use
  Company Number: JP-JNJFOC-20201004610

PATIENT
  Age: 80 Year
  Sex: Female
  Weight: 42 kg

DRUGS (26)
  1. MIRCERA [Concomitant]
     Active Substance: METHOXY POLYETHYLENE GLYCOL-EPOETIN BETA
  2. WARFARIN [Concomitant]
     Active Substance: WARFARIN
     Dates: end: 20180109
  3. HEPARIN [Concomitant]
     Active Substance: HEPARIN SODIUM
     Dates: start: 20180110, end: 20180110
  4. TADALAFIL. [Concomitant]
     Active Substance: TADALAFIL
     Indication: PULMONARY ARTERIAL HYPERTENSION
  5. FUROSEMIDE. [Concomitant]
     Active Substance: FUROSEMIDE
  6. HEPARIN [Concomitant]
     Active Substance: HEPARIN SODIUM
     Dates: start: 20180109, end: 20180109
  7. FUROSEMIDE. [Concomitant]
     Active Substance: FUROSEMIDE
     Indication: CARDIAC FAILURE
     Dates: start: 20171109, end: 20171128
  8. WARFARIN [Concomitant]
     Active Substance: WARFARIN
     Dates: start: 20180119, end: 20180122
  9. WARFARIN [Concomitant]
     Active Substance: WARFARIN
     Dates: start: 20180123
  10. HEPARIN [Concomitant]
     Active Substance: HEPARIN SODIUM
     Dates: start: 20180114, end: 20180121
  11. SAMSCA [Concomitant]
     Active Substance: TOLVAPTAN
     Indication: RENAL FAILURE
  12. SPIRONOLACTONE. [Concomitant]
     Active Substance: SPIRONOLACTONE
  13. SELEXIPAG [Suspect]
     Active Substance: SELEXIPAG
     Indication: PULMONARY ARTERIAL HYPERTENSION
     Route: 048
     Dates: start: 20170803, end: 20170816
  14. SELEXIPAG [Suspect]
     Active Substance: SELEXIPAG
     Route: 048
     Dates: start: 20170817, end: 20170906
  15. SELEXIPAG [Suspect]
     Active Substance: SELEXIPAG
     Route: 048
     Dates: start: 20170907, end: 20170927
  16. LANSOPRAZOLE. [Concomitant]
     Active Substance: LANSOPRAZOLE
  17. TRACLEER [Concomitant]
     Active Substance: BOSENTAN
     Indication: PULMONARY ARTERIAL HYPERTENSION
  18. SELEXIPAG [Suspect]
     Active Substance: SELEXIPAG
     Route: 048
     Dates: start: 20171207, end: 20171227
  19. SELEXIPAG [Suspect]
     Active Substance: SELEXIPAG
     Route: 048
     Dates: start: 20171228, end: 20180103
  20. SELEXIPAG [Suspect]
     Active Substance: SELEXIPAG
     Route: 048
     Dates: start: 20180104, end: 20180115
  21. HEPARIN [Concomitant]
     Active Substance: HEPARIN SODIUM
     Dates: start: 20180113, end: 20180113
  22. SELEXIPAG [Suspect]
     Active Substance: SELEXIPAG
     Route: 048
     Dates: start: 20170928, end: 20171115
  23. FERROUS CITRATE NA [Concomitant]
     Active Substance: SODIUM FERROUS CITRATE
  24. FEBURIC [Concomitant]
     Active Substance: FEBUXOSTAT
  25. HEPARIN [Concomitant]
     Active Substance: HEPARIN SODIUM
     Dates: start: 20180111, end: 20180111
  26. HEPARIN [Concomitant]
     Active Substance: HEPARIN SODIUM
     Dates: start: 20180112, end: 20180112

REACTIONS (2)
  - Cardiac failure [Recovered/Resolved]
  - Biopsy lung [Recovered/Resolved]

NARRATIVE: CASE EVENT DATE: 20171109
